FAERS Safety Report 9155363 (Version 1)
Quarter: 2013Q1

REPORT INFORMATION
  Report Type: Spontaneous
  Country: DE (occurrence: None)
  Receive Date: 20130206
  Receipt Date: 20130206
  Transmission Date: 20140127
  Serious: Yes (Other)
  Sender: FDA-Public Use
  Company Number: GER/GER/13/0027764

PATIENT
  Age: 69 Year
  Sex: Male
  Weight: 89 kg

DRUGS (3)
  1. SIMVASTATIN (SIMVASTATIN) [Suspect]
     Indication: PRODUCT USED FOR UNKNOWN INDICATION
     Route: 048
  2. PRADAXA [Suspect]
     Indication: ATRIAL FIBRILLATION
     Dosage: 1 IN 1 D
     Route: 048
     Dates: start: 201110
  3. BISOPROLOL (BISOPROLOL) [Concomitant]

REACTIONS (2)
  - Basal cell carcinoma [None]
  - Malignant melanoma [None]
